FAERS Safety Report 6673998-9 (Version None)
Quarter: 2010Q2

REPORT INFORMATION
  Report Type: 
  Country: None (occurrence: None)
  Receive Date: 20100409
  Receipt Date: 20100302
  Transmission Date: 20101027
  Serious: No
  Sender: FDA-Public Use
  Company Number: A0847596A

PATIENT
  Age: 70 Year
  Sex: Female

DRUGS (4)
  1. EXTINA [Suspect]
     Indication: CANDIDIASIS
     Route: 061
     Dates: start: 20100223
  2. SEREVENT [Concomitant]
  3. QVAR 40 [Concomitant]
  4. ALBUTEROL [Concomitant]

REACTIONS (3)
  - ERYTHEMA [None]
  - ILL-DEFINED DISORDER [None]
  - RASH [None]
